FAERS Safety Report 13818085 (Version 1)
Quarter: 2017Q3

REPORT INFORMATION
  Report Type: Spontaneous
  Country: US (occurrence: US)
  Receive Date: 20170731
  Receipt Date: 20170731
  Transmission Date: 20171127
  Serious: Yes (Other)
  Sender: FDA-Public Use
  Company Number: US-ROCHE-626359

PATIENT
  Age: 39 Year
  Sex: Male
  Weight: 55.8 kg

DRUGS (15)
  1. DILANTIN [Concomitant]
     Active Substance: PHENYTOIN
     Route: 065
  2. DRISDOL [Concomitant]
     Active Substance: ERGOCALCIFEROL
     Route: 065
  3. PREVACID [Concomitant]
     Active Substance: LANSOPRAZOLE
     Route: 065
  4. ALBUTEROL. [Concomitant]
     Active Substance: ALBUTEROL
     Dosage: FREQUENCY: PRN, FORM: NEBULIZER
     Route: 065
  5. BONIVA [Suspect]
     Active Substance: IBANDRONATE SODIUM
     Indication: OSTEOPOROSIS
     Route: 042
     Dates: start: 20081210, end: 20090320
  6. DEPAKENE [Concomitant]
     Active Substance: VALPROIC ACID
     Route: 065
  7. FLONASE [Concomitant]
     Active Substance: FLUTICASONE PROPIONATE
     Route: 065
  8. ALIVIUM [Concomitant]
     Active Substance: IBUPROFEN
     Route: 065
  9. LACTULOSE. [Concomitant]
     Active Substance: LACTULOSE
     Route: 065
  10. GLUCERNA [Concomitant]
     Active Substance: AMINO ACIDS\DEXTROSE\ELECTROLYTES NOS\SOYBEAN OIL\VITAMINS
     Route: 065
  11. ASTELIN [Concomitant]
     Active Substance: AZELASTINE HYDROCHLORIDE
     Route: 065
  12. CALCIUM CARBONATE. [Concomitant]
     Active Substance: CALCIUM CARBONATE
     Route: 065
  13. TYLENOL [Concomitant]
     Active Substance: ACETAMINOPHEN
     Dosage: FREQUENCY: PRN
     Route: 065
  14. SYNTHROID [Concomitant]
     Active Substance: LEVOTHYROXINE SODIUM
     Route: 065
  15. CALCITONIN [Concomitant]
     Active Substance: CALCITONIN
     Dosage: ROUTE: NASAL, FORM: SPRAY.
     Route: 050

REACTIONS (7)
  - Injection site swelling [Recovering/Resolving]
  - Injection site induration [Unknown]
  - Wound necrosis [Recovering/Resolving]
  - Injection site extravasation [Unknown]
  - Injection site vesicles [Recovering/Resolving]
  - Injection site erythema [Recovering/Resolving]
  - Rash [Unknown]

NARRATIVE: CASE EVENT DATE: 200812
